FAERS Safety Report 9410198 (Version 3)
Quarter: 2013Q3

REPORT INFORMATION
  Report Type: Spontaneous
  Country: US (occurrence: None)
  Receive Date: 20130404
  Receipt Date: 20130815
  Transmission Date: 20140515
  Serious: Yes (Hospitalization, Other)
  Sender: FDA-Public Use
  Company Number: ADR-2011-11809

PATIENT
  Sex: Female

DRUGS (2)
  1. LIORESAL INTRATHECAL (BACLOFEN INJECTION) [Suspect]
     Indication: MUSCLE SPASTICITY
     Dosage: SEE B5
  2. ORAL BACLOFEN [Concomitant]

REACTIONS (13)
  - Overdose [None]
  - Movement disorder [None]
  - Incorrect dose administered [None]
  - Iatrogenic injury [None]
  - Incorrect drug dosage form administered [None]
  - Incoherent [None]
  - Incontinence [None]
  - Respiratory rate decreased [None]
  - Drug withdrawal syndrome [None]
  - Performance status decreased [None]
  - Myalgia [None]
  - Muscle spasms [None]
  - Vomiting [None]
